FAERS Safety Report 13495016 (Version 1)
Quarter: 2017Q2

REPORT INFORMATION
  Report Type: Spontaneous
  Country: JP (occurrence: JP)
  Receive Date: 20170428
  Receipt Date: 20170428
  Transmission Date: 20170830
  Serious: Yes (Hospitalization, Other)
  Sender: FDA-Public Use
  Company Number: JP-ELI_LILLY_AND_COMPANY-JP201704008585

PATIENT
  Age: 30 Year
  Sex: Female

DRUGS (13)
  1. NITRAZEPAM [Concomitant]
     Active Substance: NITRAZEPAM
     Dosage: 5 MG, UNK
  2. IBUPROFEN. [Concomitant]
     Active Substance: IBUPROFEN
     Dosage: UNK
     Route: 048
  3. CAFEINE [Concomitant]
     Active Substance: CAFFEINE
     Dosage: UNK
     Route: 048
  4. DIAZEPAM. [Concomitant]
     Active Substance: DIAZEPAM
     Dosage: 6 MG, UNK
  5. ZYBAN [Suspect]
     Active Substance: BUPROPION HYDROCHLORIDE
     Indication: SMOKING CESSATION THERAPY
     Dosage: UNK
     Route: 048
  6. ACETYLSALICYLIC ACID [Concomitant]
     Active Substance: ASPIRIN
     Dosage: UNK
     Route: 048
  7. DIAZEPAM. [Concomitant]
     Active Substance: DIAZEPAM
     Dosage: 2 MG, UNK
  8. ZYBAN [Suspect]
     Active Substance: BUPROPION HYDROCHLORIDE
     Dosage: UNK
     Route: 048
  9. CYMBALTA [Suspect]
     Active Substance: DULOXETINE HYDROCHLORIDE
     Dosage: 40 MG, QD
     Route: 048
  10. NITRAZEPAM [Concomitant]
     Active Substance: NITRAZEPAM
     Dosage: 10 MG, UNK
  11. KAMISHOYOSAN                       /07987101/ [Concomitant]
     Active Substance: HERBALS
     Dosage: 7.5 G, UNK
  12. CYMBALTA [Suspect]
     Active Substance: DULOXETINE HYDROCHLORIDE
     Indication: DEPRESSION
     Dosage: 20 MG, QD
     Route: 048
  13. CODEINE PHOSPHATE [Concomitant]
     Active Substance: CODEINE PHOSPHATE
     Dosage: UNK
     Route: 048

REACTIONS (4)
  - Toxicity to various agents [Recovering/Resolving]
  - Generalised tonic-clonic seizure [Recovering/Resolving]
  - Delirium [Recovering/Resolving]
  - Rhabdomyolysis [Recovering/Resolving]
